FAERS Safety Report 8078779-X (Version None)
Quarter: 2012Q1

REPORT INFORMATION
  Report Type: 
  Country: None (occurrence: None)
  Receive Date: 20120124
  Receipt Date: 20120110
  Transmission Date: 20120608
  Serious: Yes (Death)
  Sender: FDA-Public Use
  Company Number: 1000027258

PATIENT
  Age: 24 Year
  Sex: Male

DRUGS (7)
  1. PAROXETINE [Suspect]
     Dosage: ORAL
     Route: 048
  2. CITALOPRAM HYDROBROMIDE [Suspect]
     Dosage: ORAL
     Route: 048
  3. NORTRIPTYLINE HCL [Suspect]
     Dosage: ORAL
     Route: 048
  4. ANTACID [Concomitant]
     Dosage: ORAL
     Route: 048
  5. LOMOTIL [Suspect]
     Dosage: ORAL
     Route: 048
  6. THORAZINE [Suspect]
     Dosage: ORAL
     Route: 048
  7. METRONIDAZOLE HYDROCHLORIDE [Suspect]
     Dosage: ORAL
     Route: 048

REACTIONS (1)
  - INTENTIONAL OVERDOSE [None]
